FAERS Safety Report 9515848 (Version 1)
Quarter: 2013Q1

REPORT INFORMATION
  Report Type: Spontaneous
  Country: US (occurrence: None)
  Receive Date: 20130305
  Receipt Date: 20130305
  Transmission Date: 20140127
  Serious: Yes (Other)
  Sender: FDA-Public Use
  Company Number: 163-21880-12120920

PATIENT
  Age: 57 Year
  Sex: Male
  Weight: 153.77 kg

DRUGS (9)
  1. REVLIMID [Suspect]
     Indication: PLASMA CELL MYELOMA
     Route: 048
     Dates: start: 20100622
  2. ASPIRIN EC (ACETYLSALICYLIC ACID) [Concomitant]
  3. CALCIUM [Concomitant]
  4. CRESTOR (ROSUVASTATIN) [Concomitant]
  5. POTASSIUM CHLORIDE (POTASSIUM CHLORIDE) [Concomitant]
  6. PROMETHAZINE HCL (PROMETHAZINE HYDROCHLORIDE) [Concomitant]
  7. REQUIP (ROPINIROLE HYDROCHLORIDE) [Concomitant]
  8. SUDAFED (PSEUDOEPHEDRINE HYDROCHLORIDE) [Concomitant]
  9. ZOMETA (ZOLEDRONIC ACID) [Concomitant]

REACTIONS (1)
  - Diarrhoea [None]
